FAERS Safety Report 20430823 (Version 1)
Quarter: 2022Q1

REPORT INFORMATION
  Report Type: Report from Study
  Country: US (occurrence: US)
  Receive Date: 20220204
  Receipt Date: 20220204
  Transmission Date: 20220423
  Serious: Yes (Hospitalization)
  Sender: FDA-Public Use
  Company Number: US-SERVIER-S21006439

PATIENT

DRUGS (10)
  1. PEGASPARGASE [Suspect]
     Active Substance: PEGASPARGASE
     Indication: Philadelphia positive acute lymphocytic leukaemia
     Dosage: 5250 UI, ONCE ON DAY 2
     Route: 042
     Dates: start: 20210120
  2. CYCLOPHOSPHAMIDE [Suspect]
     Active Substance: CYCLOPHOSPHAMIDE
     Indication: Philadelphia positive acute lymphocytic leukaemia
     Dosage: 2070 MG, ONE DOSE
     Route: 042
     Dates: start: 20210104
  3. RUXOLITINIB PHOSPHATE [Concomitant]
     Active Substance: RUXOLITINIB PHOSPHATE
     Indication: Philadelphia positive acute lymphocytic leukaemia
     Dosage: 100 MG, BID
     Route: 048
     Dates: start: 20210104
  4. CYTARABINE [Suspect]
     Active Substance: CYTARABINE
     Indication: Philadelphia positive acute lymphocytic leukaemia
     Dosage: 160 MG, QD
     Route: 042
     Dates: start: 20210111, end: 20210114
  5. THIOGUANINE [Suspect]
     Active Substance: THIOGUANINE
     Indication: Philadelphia positive acute lymphocytic leukaemia
     Dosage: 860 MG, EVERY 1 WEEK
     Route: 048
     Dates: start: 20210104
  6. TN UNSPECIFIED [Concomitant]
     Indication: Philadelphia positive acute lymphocytic leukaemia
     Dosage: 2 MG, ONCE
     Route: 042
     Dates: start: 20210120
  7. TN UNSPECIFIED [Concomitant]
     Indication: Philadelphia positive acute lymphocytic leukaemia
     Dosage: 15 MG, ONCE
     Route: 037
     Dates: start: 20210120
  8. ZOFRAN [Concomitant]
     Active Substance: ONDANSETRON HYDROCHLORIDE
     Indication: Product used for unknown indication
     Dosage: UNK
     Route: 065
     Dates: start: 20200617
  9. BACTRIM [Concomitant]
     Active Substance: SULFAMETHOXAZOLE\TRIMETHOPRIM
     Indication: Product used for unknown indication
     Dosage: UNK
     Route: 065
     Dates: start: 20200624
  10. TN UNSPECIFIED [Concomitant]
     Indication: Product used for unknown indication
     Dosage: UNK
     Route: 065

REACTIONS (1)
  - Sepsis [Recovered/Resolved]

NARRATIVE: CASE EVENT DATE: 20210126
